FAERS Safety Report 12421156 (Version 2)
Quarter: 2016Q4

REPORT INFORMATION
  Report Type: Spontaneous
  Country: US (occurrence: US)
  Receive Date: 20160531
  Receipt Date: 20161011
  Transmission Date: 20170207
  Serious: No
  Sender: FDA-Public Use
  Company Number: US-GLAXOSMITHKLINE-US2016076323

PATIENT
  Age: 77 Year
  Sex: Female

DRUGS (1)
  1. TRANSDERM SCOP [Suspect]
     Active Substance: SCOPOLAMINE
     Indication: MOTION SICKNESS
     Dosage: UNK
     Dates: start: 20160426, end: 20160515

REACTIONS (4)
  - Nausea [Recovered/Resolved]
  - Fall [Unknown]
  - Head injury [Unknown]
  - Product quality issue [Unknown]

NARRATIVE: CASE EVENT DATE: 20160515
